FAERS Safety Report 8673251 (Version 17)
Quarter: 2013Q1

REPORT INFORMATION
  Report Type: Spontaneous
  Country: US (occurrence: US)
  Receive Date: 20120703
  Receipt Date: 20130201
  Transmission Date: 20140127
  Serious: Yes (Hospitalization, Other)
  Sender: FDA-Public Use
  Company Number: US-MSD-2012SP036740

PATIENT
  Sex: Male

DRUGS (10)
  1. PEG-INTRON [Suspect]
     Indication: HEPATITIS C
     Dosage: UNK
     Dates: start: 20060106, end: 20060623
  2. PEG-INTRON [Suspect]
     Dosage: 150 MICROGRAM, QW
     Dates: start: 20120706, end: 20130109
  3. RIBAVIRIN [Suspect]
     Indication: HEPATITIS C
     Dosage: UNK
     Dates: start: 20060106, end: 20060623
  4. RIBAVIRIN [Suspect]
     Dosage: UNK
     Route: 048
     Dates: start: 20120706, end: 20130109
  5. VICTRELIS [Suspect]
     Indication: HEPATITIS C
     Dosage: UNK
     Dates: start: 20120811, end: 20130109
  6. WELLBUTRIN [Concomitant]
     Indication: DEPRESSION
  7. QUETIAPINE FUMARATE [Concomitant]
     Indication: DEPRESSION
  8. OXYCONTIN [Concomitant]
     Indication: VARICOSE VEIN
  9. RITALIN [Concomitant]
     Indication: DEPRESSION
     Dosage: UNK
  10. ABILIFY [Concomitant]
     Indication: DEPRESSION
     Dosage: UNK

REACTIONS (117)
  - Benign neoplasm of adrenal gland [Unknown]
  - Rectal haemorrhage [Unknown]
  - Pain in extremity [Unknown]
  - Varicose vein [Unknown]
  - Bunion [Unknown]
  - Inappropriate schedule of drug administration [Unknown]
  - Nervousness [Unknown]
  - Confusional state [Unknown]
  - Feeling abnormal [Unknown]
  - Frustration [Unknown]
  - Therapy cessation [Unknown]
  - Bronchitis [Unknown]
  - Respiratory tract congestion [Unknown]
  - Glossodynia [Unknown]
  - Haematochezia [Unknown]
  - Sleep disorder therapy [Unknown]
  - Mental disorder [Not Recovered/Not Resolved]
  - Memory impairment [Unknown]
  - Mood swings [Unknown]
  - Haemorrhoids [Unknown]
  - Memory impairment [Not Recovered/Not Resolved]
  - Frustration [Unknown]
  - Somnolence [Unknown]
  - Wheezing [Unknown]
  - Drug dose omission [Unknown]
  - Somnolence [Unknown]
  - Respiratory disorder [Unknown]
  - Sleep disorder therapy [Unknown]
  - Bronchitis [Unknown]
  - Mouth ulceration [Not Recovered/Not Resolved]
  - Mood swings [Unknown]
  - Disturbance in attention [Not Recovered/Not Resolved]
  - Pain [Not Recovered/Not Resolved]
  - Oral candidiasis [Unknown]
  - Mental status changes [Unknown]
  - Libido decreased [Not Recovered/Not Resolved]
  - Dysuria [Unknown]
  - Mental disorder [Unknown]
  - Memory impairment [Unknown]
  - Reproductive tract disorder [Not Recovered/Not Resolved]
  - Erectile dysfunction [Unknown]
  - Erectile dysfunction [Unknown]
  - Depression [Unknown]
  - Depression [Unknown]
  - Depression [Unknown]
  - Disturbance in attention [Unknown]
  - Depression [Unknown]
  - Depression [Unknown]
  - Depression [Unknown]
  - Disturbance in attention [Unknown]
  - Decreased interest [Not Recovered/Not Resolved]
  - Disturbance in attention [Unknown]
  - Cough [Unknown]
  - Mental disorder [Not Recovered/Not Resolved]
  - Malaise [Unknown]
  - Disturbance in attention [Unknown]
  - Depression [Unknown]
  - Malaise [Unknown]
  - Depression [Unknown]
  - Malaise [Unknown]
  - Candida infection [Not Recovered/Not Resolved]
  - Irritability [Unknown]
  - Fatigue [Unknown]
  - Insomnia [Unknown]
  - Fatigue [Unknown]
  - Fatigue [Unknown]
  - Irritability [Unknown]
  - Nausea [Unknown]
  - Fatigue [Unknown]
  - No therapeutic response [Unknown]
  - Fatigue [Unknown]
  - Nausea [Unknown]
  - Fatigue [Unknown]
  - Asthenia [Unknown]
  - Irritability [Unknown]
  - Irritability [Unknown]
  - Fatigue [Unknown]
  - Fatigue [Unknown]
  - Asthenia [Not Recovered/Not Resolved]
  - Fatigue [Not Recovered/Not Resolved]
  - Confusional state [Unknown]
  - Amnesia [Unknown]
  - Memory impairment [Unknown]
  - Amnesia [Unknown]
  - Oral pain [Unknown]
  - Fungal infection [Unknown]
  - Depression [Unknown]
  - Fatigue [Unknown]
  - Depression [Unknown]
  - Fatigue [Unknown]
  - Anger [Unknown]
  - Nasopharyngitis [Unknown]
  - Pyrexia [Unknown]
  - Nervousness [Unknown]
  - Malaise [Unknown]
  - Depression [Unknown]
  - Apathy [Unknown]
  - Pyrexia [Unknown]
  - Bronchitis [Unknown]
  - Pain [Unknown]
  - Amnesia [Unknown]
  - Fatigue [Unknown]
  - Feeling hot [Unknown]
  - Bronchitis [Unknown]
  - Malaise [Unknown]
  - Pyrexia [Unknown]
  - Melaena [Unknown]
  - Abnormal faeces [Unknown]
  - Disturbance in attention [Unknown]
  - Malaise [Unknown]
  - Pyrexia [Unknown]
  - Pyrexia [Unknown]
  - Decreased appetite [Unknown]
  - Malaise [Unknown]
  - Respiratory tract infection [Unknown]
  - Malaise [Unknown]
  - Disturbance in attention [Unknown]
